FAERS Safety Report 8447041-5 (Version None)
Quarter: 2012Q2

REPORT INFORMATION
  Report Type: 
  Country: None (occurrence: None)
  Receive Date: 20120612
  Receipt Date: 20120601
  Transmission Date: 20120825
  Serious: Yes (Hospitalization)
  Sender: FDA-Public Use
  Company Number: WAES 0710USA02304

PATIENT
  Age: 40 Year
  Sex: Male

DRUGS (21)
  1. EPIVIR [Suspect]
     Indication: HIV INFECTION
     Dosage: 150 MG/BID 300 MG/DAILY
     Route: 048
     Dates: start: 20050803, end: 20071213
  2. EPIVIR [Suspect]
     Indication: HIV INFECTION
     Dosage: 150 MG/BID 300 MG/DAILY
     Route: 048
     Dates: start: 20050722, end: 20050802
  3. DARUNAVIR HYDRATE [Suspect]
     Dates: start: 20110119
  4. REYATAZ [Suspect]
     Indication: HIV INFECTION
     Dosage: 300 MG/DAILY
     Route: 048
     Dates: start: 20050622, end: 20070510
  5. REYATAZ [Suspect]
     Indication: HIV INFECTION
     Dosage: 300 MG/DAILY
     Route: 048
     Dates: start: 20041221, end: 20050121
  6. ISENTRESS [Suspect]
     Indication: HIV INFECTION
     Dosage: 800 MG/DAILY PO
     Route: 048
     Dates: start: 20091016, end: 20100930
  7. RETROVIR [Suspect]
     Dates: start: 20050722, end: 20050802
  8. EFAVIRENZ [Suspect]
     Indication: HIV INFECTION
     Dosage: 600 MG/DAILY PO
     Route: 048
     Dates: start: 20090717, end: 20091016
  9. EFAVIRENZ [Suspect]
     Indication: HIV INFECTION
     Dosage: 600 MG/DAILY PO
     Route: 048
     Dates: start: 20051209, end: 20070711
  10. EFAVIRENZ [Suspect]
     Indication: HIV INFECTION
     Dosage: 600 MG/DAILY PO
     Route: 048
     Dates: start: 20040614, end: 20041221
  11. KALETRA [Suspect]
     Indication: HIV INFECTION
     Dosage: 6 DOSE/DAILY 4 DOSE/DAILY
     Route: 048
     Dates: start: 20040514, end: 20040530
  12. KALETRA [Suspect]
     Indication: HIV INFECTION
     Dosage: 6 DOSE/DAILY 4 DOSE/DAILY
     Route: 048
     Dates: start: 20070511, end: 20091016
  13. EMTRICITABINE AND TENOFOVIR DISOPROXIL FUMARATE [Suspect]
     Indication: HIV INFECTION
     Dosage: 1 TAB/DAILY
     Route: 048
     Dates: start: 20071214, end: 20101001
  14. EMTRICITABINE AND TENOFOVIR DISOPROXIL FUMARATE [Suspect]
     Indication: HIV INFECTION
     Dosage: 1 TAB/DAILY
     Route: 048
     Dates: start: 20110701
  15. NORVIR [Suspect]
     Indication: HIV INFECTION
     Dosage: 100 MG/DAILY
     Route: 048
     Dates: start: 20041221, end: 20050121
  16. NORVIR [Suspect]
     Indication: HIV INFECTION
     Dosage: 100 MG/DAILY
     Route: 048
     Dates: start: 20050622, end: 20070510
  17. NORVIR [Suspect]
     Indication: HIV INFECTION
     Dosage: 100 MG/DAILY
     Route: 048
     Dates: start: 20110119
  18. VIREAD [Suspect]
     Indication: HIV INFECTION
     Dosage: 300 MG/DAILY
     Route: 048
     Dates: start: 20050802, end: 20071213
  19. COMBIVIR [Suspect]
     Dates: start: 20040514, end: 20050121
  20. COMBIVIR [Suspect]
     Dates: start: 20050622, end: 20050722
  21. ABACAVIR SULFATE/LAMIVUDINE [Suspect]
     Dates: start: 20110119, end: 20110630

REACTIONS (2)
  - DIABETES MELLITUS INADEQUATE CONTROL [None]
  - DIABETES MELLITUS [None]
